FAERS Safety Report 15971395 (Version 1)
Quarter: 2019Q1

REPORT INFORMATION
  Report Type: Report from Study
  Country: US (occurrence: US)
  Receive Date: 20190215
  Receipt Date: 20190215
  Transmission Date: 20190418
  Serious: Yes (Hospitalization, Other)
  Sender: FDA-Public Use
  Company Number: US-AMAG PHARMACEUTICALS, INC.-AMAG201900038

PATIENT
  Age: 40 Year
  Sex: Female
  Weight: 72.56 kg

DRUGS (3)
  1. PRENATAL [Concomitant]
     Active Substance: VITAMINS
     Indication: PREGNANCY
     Dosage: UNK, QD
     Route: 065
  2. MAKENA [Suspect]
     Active Substance: HYDROXYPROGESTERONE CAPROATE
     Indication: PREMATURE DELIVERY
     Dosage: 250 MG/ML, WEEKLY
     Route: 058
     Dates: start: 20181105, end: 20181221
  3. COLACE [Concomitant]
     Active Substance: DOCUSATE SODIUM
     Indication: PREGNANCY
     Dosage: UNK, BID
     Route: 065

REACTIONS (5)
  - Breech presentation [Recovered/Resolved]
  - Preterm premature rupture of membranes [Recovered/Resolved]
  - Shortened cervix [Recovered/Resolved]
  - Premature delivery [Recovered/Resolved]
  - Inappropriate schedule of product administration [Unknown]

NARRATIVE: CASE EVENT DATE: 20181201
